FAERS Safety Report 8417928-8 (Version None)
Quarter: 2012Q2

REPORT INFORMATION
  Report Type: 
  Country: None (occurrence: None)
  Receive Date: 20120601
  Receipt Date: 20120601
  Transmission Date: 20120825
  Serious: Yes (Hospitalization)
  Sender: FDA-Public Use
  Company Number: None

PATIENT
  Age: 7 Year
  Sex: Male
  Weight: 21.7727 kg

DRUGS (1)
  1. CHLORPROMAZINE HCL [Suspect]
     Indication: AUTISM
     Dosage: 10 MG TAB IN AM DAILY PO 25 MG TAB IN PM DAILY PO 50 MG TAB AT NIGHT DAILY PO
     Route: 048
     Dates: start: 20120207, end: 20120401

REACTIONS (1)
  - SWELLING [None]
